FAERS Safety Report 8992414 (Version 1)
Quarter: 2012Q4

REPORT INFORMATION
  Report Type: 
  Country: US (occurrence: US)
  Receive Date: 20121231
  Receipt Date: 20121231
  Transmission Date: 20130627
  Serious: Yes (Hospitalization)
  Sender: FDA-Public Use
  Company Number: US-B.I. PHARMACEUTICALS,INC./RIDGEFIELD-2012-BI-04379BP

PATIENT
  Age: 80 Year
  Sex: Male
  Weight: 64 kg

DRUGS (13)
  1. SPIRIVA [Suspect]
     Indication: CHRONIC OBSTRUCTIVE PULMONARY DISEASE
     Dosage: 18 mcg
     Route: 055
     Dates: start: 20120528
  2. ZANTAC 150 (RANITIDINE HYDROCHLORIDE) [Suspect]
     Indication: GASTROOESOPHAGEAL REFLUX DISEASE
     Dosage: 300 mg
     Route: 048
     Dates: start: 2012
  3. LUMIGAN EYE DROPS [Concomitant]
     Indication: DRY EYE
     Dates: start: 2012
  4. SYMBICORT [Concomitant]
     Indication: CHRONIC OBSTRUCTIVE PULMONARY DISEASE
     Dosage: 4 puf
     Route: 055
     Dates: start: 201205
  5. ZOLOFT [Concomitant]
     Indication: DEPRESSION
     Dosage: 50 mg
     Route: 048
     Dates: start: 2012
  6. FOLIC ACID [Concomitant]
     Dosage: 1 mg
     Route: 048
     Dates: start: 2012
  7. PREVASTATIN [Concomitant]
     Indication: BLOOD CHOLESTEROL INCREASED
     Dosage: 20 mg
     Route: 048
     Dates: start: 2012
  8. TEMAZEPAM [Concomitant]
     Indication: SLEEP DISORDER
     Dosage: 30 mg
     Route: 048
  9. NEPHRO VITE [Concomitant]
     Route: 048
  10. PLAVIX [Concomitant]
     Indication: CARDIAC DISORDER
     Dosage: 75 mg
     Route: 048
     Dates: start: 2012
  11. CARVEDILOL [Concomitant]
     Indication: CARDIAC DISORDER
     Dosage: 6.25 mg
     Route: 048
     Dates: start: 2012
  12. DIGOXIN [Concomitant]
     Indication: CARDIAC DISORDER
     Dosage: 125 mcg
     Route: 048
     Dates: start: 2012
  13. GLIPIZIDE [Concomitant]
     Indication: DIABETES MELLITUS
     Dosage: 2.5 mg
     Route: 048
     Dates: start: 2012

REACTIONS (2)
  - Heart rate decreased [Recovered/Resolved]
  - Dysphonia [Not Recovered/Not Resolved]
